FAERS Safety Report 7973550-9 (Version None)
Quarter: 2011Q4

REPORT INFORMATION
  Report Type: 
  Country: None (occurrence: None)
  Receive Date: 20111213
  Receipt Date: 20111209
  Transmission Date: 20120403
  Serious: Yes (Other)
  Sender: FDA-Public Use
  Company Number: GB-TEVA-312882ISR

PATIENT
  Age: 89 Year
  Sex: Male
  Weight: 104 kg

DRUGS (18)
  1. BISOPROLOL FUMARATE [Concomitant]
     Dates: start: 20110825
  2. ACETAMINOPHEN AND CODEINE PHOSPHATE [Concomitant]
     Dates: start: 20110825, end: 20110906
  3. ACETAMINOPHEN AND CODEINE PHOSPHATE [Concomitant]
     Dates: start: 20111121
  4. ALLOPURINOL [Concomitant]
     Dates: start: 20110825
  5. POLYETHYLENE GLYCOL [Concomitant]
     Dates: start: 20110825, end: 20110908
  6. ASPIRIN [Concomitant]
     Dates: start: 20110825
  7. BECONASE [Concomitant]
     Dates: start: 20111017, end: 20111114
  8. ACETAMINOPHEN AND CODEINE PHOSPHATE [Concomitant]
     Dates: start: 20110923, end: 20111005
  9. ACETAMINOPHEN AND CODEINE PHOSPHATE [Concomitant]
     Dates: start: 20111024, end: 20111105
  10. DOUBLEBASE [Concomitant]
     Dates: start: 20110923, end: 20110924
  11. CLARITHROMYCIN [Suspect]
     Dates: start: 20111122, end: 20111129
  12. VALSARTAN [Concomitant]
     Dates: start: 20111010, end: 20111107
  13. BECONASE [Concomitant]
     Dates: start: 20111121
  14. POLYETHYLENE GLYCOL [Concomitant]
     Dates: start: 20111121
  15. FUROSEMIDE [Concomitant]
     Dates: start: 20110825
  16. SIMVASTATIN [Concomitant]
     Dates: start: 20110825
  17. SPIRONOLACTONE [Concomitant]
     Dates: start: 20110825
  18. VALSARTAN [Concomitant]
     Dates: start: 20110825

REACTIONS (2)
  - URINARY INCONTINENCE [None]
  - HALLUCINATION, VISUAL [None]
